FAERS Safety Report 24167774 (Version 1)
Quarter: 2024Q3

REPORT INFORMATION
  Report Type: Spontaneous
  Country: NL (occurrence: NL)
  Receive Date: 20240802
  Receipt Date: 20240802
  Transmission Date: 20241016
  Serious: Yes (Life-Threatening, Other)
  Sender: PFIZER
  Company Number: NL-MYLANLABS-2024M1066133

PATIENT
  Age: 62 Year
  Sex: Female

DRUGS (1)
  1. ROCURONIUM BROMIDE [Suspect]
     Active Substance: ROCURONIUM BROMIDE
     Indication: Sedative therapy
     Dosage: UNK

REACTIONS (4)
  - General physical health deterioration [Unknown]
  - Respiratory failure [Unknown]
  - Hypercapnia [Unknown]
  - Muscular weakness [Unknown]
